FAERS Safety Report 9548321 (Version 1)
Quarter: 2013Q3

REPORT INFORMATION
  Report Type: Spontaneous
  Country: CA (occurrence: None)
  Receive Date: 20130920
  Receipt Date: 20130920
  Transmission Date: 20140515
  Serious: Yes (Hospitalization)
  Sender: FDA-Public Use
  Company Number: 1898042

PATIENT
  Sex: 0

DRUGS (2)
  1. HEPARIN SODIUM [Suspect]
  2. HEPARIN SODIUM [Suspect]
     Indication: PROPHYLAXIS

REACTIONS (2)
  - Hyperkalaemia [None]
  - Hypoaldosteronism [None]
